FAERS Safety Report 5320404-2 (Version None)
Quarter: 2007Q2

REPORT INFORMATION
  Report Type: 
  Country: None (occurrence: None)
  Receive Date: 20070509
  Receipt Date: 20070507
  Transmission Date: 20071010
  Serious: Yes (Hospitalization)
  Sender: FDA-Public Use
  Company Number: US-MERCK-0705USA01305

PATIENT
  Age: 72 Year
  Sex: Female

DRUGS (1)
  1. FOSAMAX [Suspect]
     Route: 065

REACTIONS (5)
  - ABDOMINAL PAIN [None]
  - CHEST DISCOMFORT [None]
  - DIARRHOEA [None]
  - NAUSEA [None]
  - VOMITING [None]
